FAERS Safety Report 8237514-2 (Version None)
Quarter: 2012Q1

REPORT INFORMATION
  Report Type: 
  Country: None (occurrence: None)
  Receive Date: 20120327
  Receipt Date: 20120321
  Transmission Date: 20120608
  Serious: Yes (Hospitalization)
  Sender: FDA-Public Use
  Company Number: GXKR2012DE001253

PATIENT
  Sex: Female

DRUGS (2)
  1. METHOTREXATE [Suspect]
     Indication: MUSCULOSKELETAL PAIN
     Dosage: 1X1 TABLET ON 6 DAYS WEEKLY
     Route: 048
  2. ARAVA [Concomitant]

REACTIONS (4)
  - ALOPECIA [None]
  - THROMBOCYTOPENIA [None]
  - INAPPROPRIATE SCHEDULE OF DRUG ADMINISTRATION [None]
  - LEUKOPENIA [None]
